FAERS Safety Report 21176901 (Version 1)
Quarter: 2022Q3

REPORT INFORMATION
  Report Type: Spontaneous
  Country: US (occurrence: US)
  Receive Date: 20220805
  Receipt Date: 20220805
  Transmission Date: 20221027
  Serious: No
  Sender: FDA-Public Use
  Company Number: US-PFIZER INC-202201037739

PATIENT
  Age: 71 Year
  Sex: Female
  Weight: 55.79 kg

DRUGS (1)
  1. PAXLOVID [Suspect]
     Active Substance: NIRMATRELVIR\RITONAVIR
     Indication: COVID-19 treatment
     Dosage: [PF-07321332 300 MG]/[RITONAVIR 100 MG]; 2X/DAY
     Dates: start: 20220717

REACTIONS (8)
  - COVID-19 [Unknown]
  - Disease recurrence [Unknown]
  - Back pain [Unknown]
  - Dyspnoea [Unknown]
  - Nasal congestion [Recovering/Resolving]
  - Headache [Not Recovered/Not Resolved]
  - Sinusitis [Not Recovered/Not Resolved]
  - Nasal dryness [Unknown]

NARRATIVE: CASE EVENT DATE: 20220730
